FAERS Safety Report 25789703 (Version 1)
Quarter: 2025Q3

REPORT INFORMATION
  Report Type: Report from Study
  Country: US (occurrence: US)
  Receive Date: 20250911
  Receipt Date: 20250911
  Transmission Date: 20251020
  Serious: Yes (Other)
  Sender: ALEXION PHARMACEUTICALS
  Company Number: US-AstraZeneca-2024-288580

PATIENT
  Sex: Male
  Weight: 99.79 kg

DRUGS (1)
  1. ACALABRUTINIB [Suspect]
     Active Substance: ACALABRUTINIB
     Indication: Chronic lymphocytic leukaemia
     Dosage: 100 MILLIGRAM, BID
     Dates: start: 20220119

REACTIONS (5)
  - Parkinson^s disease [Unknown]
  - Visual impairment [Unknown]
  - Alopecia [Unknown]
  - Tremor [Unknown]
  - Rash [Not Recovered/Not Resolved]
